FAERS Safety Report 9790023 (Version 1)
Quarter: 2013Q4

REPORT INFORMATION
  Report Type: Spontaneous
  Country: US (occurrence: None)
  Receive Date: 20131230
  Receipt Date: 20131230
  Transmission Date: 20140711
  Serious: Yes (Congenital Anomaly)
  Sender: FDA-Public Use
  Company Number: None

PATIENT
  Age: 1 Day
  Sex: Female
  Weight: 2.72 kg

DRUGS (1)
  1. ZOFRAN [Suspect]
     Indication: NAUSEA
     Dates: start: 20071207, end: 20131228

REACTIONS (4)
  - Maternal drugs affecting foetus [None]
  - Heart disease congenital [None]
  - Atrial septal defect [None]
  - Cardiac murmur [None]
